FAERS Safety Report 9286432 (Version 2)
Quarter: 2013Q3

REPORT INFORMATION
  Report Type: Report from Study
  Country: US (occurrence: US)
  Receive Date: 20130513
  Receipt Date: 20130709
  Transmission Date: 20140515
  Serious: Yes (Other)
  Sender: FDA-Public Use
  Company Number: PHEH2013US010099

PATIENT
  Sex: Female
  Weight: 53.97 kg

DRUGS (17)
  1. GILENYA [Suspect]
     Indication: RELAPSING-REMITTING MULTIPLE SCLEROSIS
     Route: 048
     Dates: start: 20121114
  2. ELAVIL [Concomitant]
     Dosage: 25 MG, BID
     Route: 048
  3. ASPIRIN [Concomitant]
     Dosage: 81 MG, UNK
     Route: 048
  4. CALCIUM + D3 [Concomitant]
     Dosage: 1 DF, TID
     Route: 048
  5. VITAMIN B12 [Concomitant]
     Dosage: 1000 UG, QMO
  6. RESTASIS [Concomitant]
     Dosage: 2 DRP, BID
     Route: 047
  7. TOPROL XL [Concomitant]
     Dosage: 25 MG, QD
     Route: 048
  8. BENICAR [Concomitant]
     Dosage: 40 MG, DAILY
     Route: 048
  9. PROTONIX [Concomitant]
     Dosage: 40 MG, DAILY
     Route: 048
  10. ZANTAC [Concomitant]
     Dosage: 75 MG, PRN
     Route: 048
  11. ZOCOR [Concomitant]
     Dosage: 10 MG, UNK
     Route: 048
  12. DEMADEX [Concomitant]
     Dosage: 10 MG, UNK
     Route: 048
  13. ULTRAM [Concomitant]
     Dosage: 50 MG, QID
     Route: 048
  14. PLAVIX [Concomitant]
     Dosage: 75 MG, DAILY
     Route: 048
  15. DIMETHYL FUMARATE [Concomitant]
     Dosage: 240 MG, BID
     Route: 048
  16. FOLATE [Concomitant]
  17. VITAMIN B12 [Concomitant]

REACTIONS (5)
  - Central nervous system lesion [Unknown]
  - Hemiparesis [Recovering/Resolving]
  - Aphasia [Recovering/Resolving]
  - Hemiplegia [Unknown]
  - Drug ineffective [Unknown]
